FAERS Safety Report 4835699-9 (Version None)
Quarter: 2005Q4

REPORT INFORMATION
  Report Type: 
  Country: None (occurrence: None)
  Receive Date: 20051121
  Receipt Date: 20051116
  Transmission Date: 20060501
  Serious: Yes (Other)
  Sender: FDA-Public Use
  Company Number: 200510549BYL

PATIENT
  Sex: Female

DRUGS (2)
  1. GLUCOBAY [Suspect]
     Indication: DIABETES MELLITUS
     Dosage: 100 MG, TID, ORAL
     Route: 048
  2. MEVALOTIN [Concomitant]

REACTIONS (1)
  - BLOOD POTASSIUM INCREASED [None]
